FAERS Safety Report 10606818 (Version 1)
Quarter: 2014Q4

REPORT INFORMATION
  Report Type: Spontaneous
  Country: US (occurrence: None)
  Receive Date: 20141124
  Receipt Date: 20141124
  Transmission Date: 20150529
  Serious: Yes (Hospitalization)
  Sender: FDA-Public Use
  Company Number: None

PATIENT
  Age: 83 Year
  Sex: Male
  Weight: 123.6 kg

DRUGS (2)
  1. WARFARIN [Suspect]
     Active Substance: WARFARIN
     Indication: DEEP VEIN THROMBOSIS
     Dosage: MG, PO
     Route: 048
     Dates: start: 20140506, end: 20141110
  2. ASPIRIN. [Suspect]
     Active Substance: ASPIRIN
     Dosage: MG, PO
     Route: 048
     Dates: start: 20070926

REACTIONS (4)
  - Condition aggravated [None]
  - Haemorrhoidal haemorrhage [None]
  - Gastric haemorrhage [None]
  - Anaemia [None]

NARRATIVE: CASE EVENT DATE: 20141110
